FAERS Safety Report 19813972 (Version 3)
Quarter: 2021Q4

REPORT INFORMATION
  Report Type: Spontaneous
  Country: DE (occurrence: DE)
  Receive Date: 20210910
  Receipt Date: 20211215
  Transmission Date: 20220303
  Serious: Yes (Hospitalization, Other)
  Sender: FDA-Public Use
  Company Number: DE-MYLANLABS-2021M1059091

PATIENT
  Sex: Female

DRUGS (1)
  1. IBUPROFEN [Suspect]
     Active Substance: IBUPROFEN
     Indication: Respiratory tract infection
     Dosage: UNK

REACTIONS (5)
  - Eosinophilic pneumonia acute [Unknown]
  - Cardiomyopathy [Unknown]
  - Eosinophilic myocarditis [Unknown]
  - Product use in unapproved indication [Unknown]
  - Off label use [Unknown]
